FAERS Safety Report 19445547 (Version 1)
Quarter: 2021Q2

REPORT INFORMATION
  Report Type: Spontaneous
  Country: CA (occurrence: CA)
  Receive Date: 20210622
  Receipt Date: 20210622
  Transmission Date: 20210717
  Serious: Yes (Other)
  Sender: FDA-Public Use
  Company Number: CA-AUROBINDO-AUR-APL-2021-025855

PATIENT
  Age: 41 Year
  Sex: Female

DRUGS (3)
  1. ATOMOXETINE CAPSULES [Suspect]
     Active Substance: ATOMOXETINE
     Dosage: 50 MILLIGRAM, ONCE A DAY
     Route: 048
  2. MIRVALA 21 [Concomitant]
     Indication: PRODUCT USED FOR UNKNOWN INDICATION
     Dosage: UNK
     Route: 065
  3. ATOMOXETINE CAPSULES [Suspect]
     Active Substance: ATOMOXETINE
     Indication: ATTENTION DEFICIT HYPERACTIVITY DISORDER
     Dosage: 25 MILLIGRAM, ONCE A DAY
     Route: 048

REACTIONS (3)
  - Blood pressure increased [Not Recovered/Not Resolved]
  - Insomnia [Not Recovered/Not Resolved]
  - Hot flush [Not Recovered/Not Resolved]
